FAERS Safety Report 11500857 (Version 3)
Quarter: 2016Q1

REPORT INFORMATION
  Report Type: Spontaneous
  Country: US (occurrence: US)
  Receive Date: 20150914
  Receipt Date: 20160205
  Transmission Date: 20160525
  Serious: Yes (Other)
  Sender: FDA-Public Use
  Company Number: US-BAYER-2015-421077

PATIENT
  Age: 32 Year
  Sex: Female
  Weight: 83.49 kg

DRUGS (1)
  1. MIRENA [Suspect]
     Active Substance: LEVONORGESTREL
     Indication: CONTRACEPTION
     Dosage: 20 MCG/24HR, CONT
     Route: 015
     Dates: start: 20130213, end: 20150618

REACTIONS (4)
  - Drug ineffective [None]
  - Uterine perforation [Recovered/Resolved]
  - Pregnancy with contraceptive device [Recovered/Resolved]
  - Device issue [None]

NARRATIVE: CASE EVENT DATE: 201504
